FAERS Safety Report 9011471 (Version 1)
Quarter: 2013Q1

REPORT INFORMATION
  Report Type: Spontaneous
  Country: US (occurrence: US)
  Receive Date: 20130108
  Receipt Date: 20130108
  Transmission Date: 20140127
  Serious: Yes (Hospitalization)
  Sender: FDA-Public Use
  Company Number: US-BAYER-2013-000587

PATIENT
  Age: 41 Year
  Sex: Female
  Weight: 93.88 kg

DRUGS (15)
  1. YASMIN [Suspect]
     Dosage: UNK
     Dates: start: 20110524, end: 20110817
  2. YASMIN [Suspect]
     Dosage: UNK
     Dates: start: 20111020, end: 20120119
  3. YASMIN [Suspect]
     Dosage: UNK
     Dates: start: 20110817
  4. GIANVI [Suspect]
  5. YAZ [Suspect]
  6. BENZONATATE [Concomitant]
     Dosage: 200 MG, UNK
  7. DOXYCYCLINE [Concomitant]
     Dosage: 100 MG, UNK
  8. AMITRIPTYLINE [Concomitant]
     Dosage: 100 MG, UNK
  9. ZOLPIDEM TARTRATE [Concomitant]
     Dosage: 12.5 MG,CR TAB
  10. RELPAX [Concomitant]
     Dosage: 10 MG, UNK
  11. KLONOPIN [Concomitant]
  12. LAMICTAL [Concomitant]
  13. GEODON [Concomitant]
  14. ZOCOR [Concomitant]
  15. AMBIAN [Concomitant]

REACTIONS (2)
  - Pulmonary embolism [None]
  - Deep vein thrombosis [None]
